FAERS Safety Report 18391492 (Version 1)
Quarter: 2020Q4

REPORT INFORMATION
  Report Type: Spontaneous
  Country: BR (occurrence: BR)
  Receive Date: 20201016
  Receipt Date: 20201016
  Transmission Date: 20210114
  Serious: Yes (Other)
  Sender: FDA-Public Use
  Company Number: NVSC2020BR275011

PATIENT
  Age: 53 Year
  Sex: Male

DRUGS (3)
  1. OCTREOTIDE LAR SANDOZ [Suspect]
     Active Substance: OCTREOTIDE ACETATE
  2. OCTREOTIDE LAR SANDOZ [Suspect]
     Active Substance: OCTREOTIDE ACETATE
  3. OCTREOTIDE LAR SANDOZ [Suspect]
     Active Substance: OCTREOTIDE ACETATE
     Indication: HEPATIC CANCER METASTATIC
     Dosage: 30 MCG/ML, EVERY 28 DAYS
     Route: 030
     Dates: start: 201711, end: 2019

REACTIONS (3)
  - Hepatic mass [Unknown]
  - Hepatic perfusion disorder [Unknown]
  - Gastrointestinal wall thickening [Unknown]
